FAERS Safety Report 4762941-5 (Version None)
Quarter: 2005Q3

REPORT INFORMATION
  Report Type: 
  Country: None (occurrence: None)
  Receive Date: 20050907
  Receipt Date: 20050823
  Transmission Date: 20060218
  Serious: Yes (Other)
  Sender: FDA-Public Use
  Company Number: US-AMGEN-US147740

PATIENT
  Sex: Male

DRUGS (5)
  1. ENBREL [Suspect]
     Indication: PSORIASIS
     Dates: end: 20050101
  2. UNSPECIFIED ANTIHYPERTENSIVE AGENT [Concomitant]
  3. UNSPECIFIED ANTIHYPERTENSIVE AGENT [Concomitant]
  4. UNSPECIFIED ANTIHYPERTENSIVE AGENT [Concomitant]
  5. UNSPECIFIED ANTIHYPERTENSIVE AGENT [Concomitant]

REACTIONS (5)
  - ANTIPHOSPHOLIPID SYNDROME [None]
  - CONDITION AGGRAVATED [None]
  - EMBOLISM [None]
  - PSORIATIC ARTHROPATHY [None]
  - VASCULAR OCCLUSION [None]
